FAERS Safety Report 6826021-7 (Version None)
Quarter: 2010Q3

REPORT INFORMATION
  Report Type: 
  Country: None (occurrence: None)
  Receive Date: 20100707
  Receipt Date: 20100707
  Transmission Date: 20110219
  Serious: Yes (Other)
  Sender: FDA-Public Use
  Company Number: None

PATIENT
  Age: 47 Year
  Sex: Male

DRUGS (2)
  1. PROLIXIN [Suspect]
     Dosage: 1 CC WHAT CHANGE
  2. HALDOL [Suspect]
     Dosage: 30 MG HALDOL PER PROLIXIN X 2

REACTIONS (2)
  - REFUSAL OF TREATMENT BY PATIENT [None]
  - TREATMENT NONCOMPLIANCE [None]
